FAERS Safety Report 9250751 (Version 1)
Quarter: 2013Q1

REPORT INFORMATION
  Report Type: Spontaneous
  Country: US (occurrence: None)
  Receive Date: 20130305
  Receipt Date: 20130305
  Transmission Date: 20140127
  Serious: Yes (Other)
  Sender: FDA-Public Use
  Company Number: 163-21880-12082934

PATIENT
  Age: 77 Year
  Sex: Female

DRUGS (1)
  1. REVLIMID [Suspect]
     Indication: PLASMA CELL MYELOMA
     Dosage: 20 MG, 21 IN 28 D, PO
     Dates: start: 20120719

REACTIONS (4)
  - Deep vein thrombosis [None]
  - Fatigue [None]
  - Blood pressure abnormal [None]
  - Renal disorder [None]
